FAERS Safety Report 7362983-X (Version None)
Quarter: 2011Q1

REPORT INFORMATION
  Report Type: 
  Country: None (occurrence: None)
  Receive Date: 20110321
  Receipt Date: 20110309
  Transmission Date: 20110831
  Serious: Yes (Other)
  Sender: FDA-Public Use
  Company Number: US-CELGENEUS-163-21880-11021843

PATIENT
  Sex: Male
  Weight: 63.1 kg

DRUGS (2)
  1. REVLIMID [Suspect]
     Dosage: 15 MILLIGRAM
     Route: 048
     Dates: start: 20110117
  2. DEXAMETHASONE [Suspect]
     Route: 065

REACTIONS (2)
  - ANXIETY [None]
  - RHINORRHOEA [None]
